FAERS Safety Report 5633800-0 (Version None)
Quarter: 2008Q1

REPORT INFORMATION
  Report Type: 
  Country: None (occurrence: None)
  Receive Date: 20080219
  Receipt Date: 20080204
  Transmission Date: 20080703
  Serious: Yes (Death, Hospitalization)
  Sender: FDA-Public Use
  Company Number: 100#08#2008-00650

PATIENT
  Age: 68 Year
  Sex: Male

DRUGS (9)
  1. METFORMIN HCL [Suspect]
     Indication: DIABETES MELLITUS
     Dosage: 850 MG EVERY 12 HOURS
  2. TORSEMIDE [Suspect]
     Indication: DRUG USE FOR UNKNOWN INDICATION
  3. GLYBURIDE [Suspect]
     Indication: DRUG USE FOR UNKNOWN INDICATION
  4. ACETYLSALICYLIC ACID SRT [Suspect]
     Indication: DRUG USE FOR UNKNOWN INDICATION
  5. DILTIAZEM [Suspect]
     Indication: DRUG USE FOR UNKNOWN INDICATION
  6. RAMIPRIL [Suspect]
     Indication: DRUG USE FOR UNKNOWN INDICATION
  7. CLOPIDOGREL [Suspect]
     Indication: DRUG USE FOR UNKNOWN INDICATION
  8. NITROGLYCERIN [Suspect]
     Indication: DRUG USE FOR UNKNOWN INDICATION
  9. TRIMETAZIDINE (TRIMETAZIDINE) [Suspect]
     Indication: DRUG USE FOR UNKNOWN INDICATION

REACTIONS (7)
  - CARDIAC ARREST [None]
  - DRUG TOXICITY [None]
  - HAEMODIALYSIS [None]
  - METABOLIC ACIDOSIS [None]
  - RENAL FAILURE [None]
  - TREATMENT FAILURE [None]
  - VENTRICULAR ASYSTOLE [None]
